FAERS Safety Report 23898335 (Version 1)
Quarter: 2024Q2

REPORT INFORMATION
  Report Type: Spontaneous
  Country: US (occurrence: US)
  Receive Date: 20240524
  Receipt Date: 20240524
  Transmission Date: 20240716
  Serious: No
  Sender: FDA-Public Use
  Company Number: US-009507513-2405USA005876

PATIENT
  Sex: Female

DRUGS (1)
  1. KEYTRUDA [Suspect]
     Active Substance: PEMBROLIZUMAB
     Dosage: 2 MILLIGRAM/KILOGRAM, Q3W
     Route: 042
     Dates: start: 20230830

REACTIONS (4)
  - Nausea [Unknown]
  - Vomiting [Unknown]
  - Blood creatinine increased [Unknown]
  - Incorrect dose administered [Unknown]
